FAERS Safety Report 17712426 (Version 1)
Quarter: 2020Q2

REPORT INFORMATION
  Report Type: Spontaneous
  Country: US (occurrence: US)
  Receive Date: 20200427
  Receipt Date: 20200427
  Transmission Date: 20200714
  Serious: Yes (Hospitalization)
  Sender: FDA-Public Use
  Company Number: None

PATIENT
  Age: 52 Year
  Sex: Female

DRUGS (1)
  1. DAPSONE (DAPSONE 100MG TAB) [Suspect]
     Active Substance: DAPSONE
     Indication: ASTHMA
     Route: 048
     Dates: start: 20200302, end: 20200406

REACTIONS (2)
  - Rash [None]
  - Eosinophilia [None]

NARRATIVE: CASE EVENT DATE: 20200406
